FAERS Safety Report 7633824-8 (Version None)
Quarter: 2011Q3

REPORT INFORMATION
  Report Type: 
  Country: None (occurrence: None)
  Receive Date: 20110725
  Receipt Date: 20110720
  Transmission Date: 20111222
  Serious: Yes (Death, Disabling)
  Sender: FDA-Public Use
  Company Number: GB-ACTELION-A-CH2011-46688

PATIENT
  Sex: Male

DRUGS (6)
  1. ALLOPURINOL [Concomitant]
  2. SPIRONOLACTONE [Concomitant]
  3. FUROSEMIDE [Concomitant]
  4. SILDENAFIL CITRATE [Concomitant]
  5. TRACLEER [Suspect]
     Indication: PULMONARY HYPERTENSION
     Dosage: 125 MG, UNK
     Route: 048
     Dates: start: 20090401, end: 20110401
  6. INSULIN [Concomitant]

REACTIONS (2)
  - NEUROPATHY PERIPHERAL [None]
  - CONDITION AGGRAVATED [None]
